FAERS Safety Report 5025057-9 (Version None)
Quarter: 2006Q2

REPORT INFORMATION
  Report Type: 
  Country: None (occurrence: None)
  Receive Date: 20060613
  Receipt Date: 20060320
  Transmission Date: 20061013
  Serious: Yes (Other)
  Sender: FDA-Public Use
  Company Number: PHMT2006CA00902

PATIENT
  Age: 42 Year
  Sex: Female
  Weight: 61.678 kg

DRUGS (3)
  1. ELIDEL [Suspect]
     Indication: DERMATITIS ATOPIC
     Dosage: 5 ML/DAY
     Route: 061
     Dates: start: 20050101, end: 20060201
  2. THYROXINE [Concomitant]
     Indication: HYPOTHYROIDISM
     Route: 048
  3. CELEXA [Concomitant]
     Indication: DEPRESSION

REACTIONS (3)
  - ABORTION SPONTANEOUS [None]
  - DRUG EXPOSURE DURING PREGNANCY [None]
  - INTRA-UTERINE DEATH [None]
